FAERS Safety Report 22041109 (Version 2)
Quarter: 2023Q2

REPORT INFORMATION
  Report Type: Report from Study
  Country: US (occurrence: US)
  Receive Date: 20230227
  Receipt Date: 20230622
  Transmission Date: 20230721
  Serious: Yes (Hospitalization, Other)
  Sender: FDA-Public Use
  Company Number: US-TAIHO-2023-001343

PATIENT
  Age: 51 Year
  Sex: Female
  Weight: 109.23 kg

DRUGS (1)
  1. LONSURF [Suspect]
     Active Substance: TIPIRACIL HYDROCHLORIDE\TRIFLURIDINE
     Indication: Colon cancer
     Dosage: CYCLE 1
     Route: 048
     Dates: start: 20230203

REACTIONS (3)
  - Tumour haemorrhage [Unknown]
  - Cytopenia [Unknown]
  - Product communication issue [Unknown]
